FAERS Safety Report 5330717-6 (Version None)
Quarter: 2007Q2

REPORT INFORMATION
  Report Type: 
  Country: None (occurrence: None)
  Receive Date: 20070522
  Receipt Date: 20070516
  Transmission Date: 20071010
  Serious: Yes (Hospitalization, Other)
  Sender: FDA-Public Use
  Company Number: PHBS2007BR08091

PATIENT
  Sex: Female

DRUGS (3)
  1. ZOMETA [Suspect]
     Indication: MULTIPLE MYELOMA
     Dosage: 4 MG, UNK
     Route: 042
     Dates: start: 20040801
  2. THALIDOMIDE [Concomitant]
     Dosage: 100 MG, QD
  3. HYDROCHLOROTHIAZIDE [Concomitant]
     Dosage: 25 MG, QD

REACTIONS (5)
  - ACUTE LYMPHOCYTIC LEUKAEMIA [None]
  - CHEMOTHERAPY [None]
  - DENTAL TREATMENT [None]
  - IMPAIRED HEALING [None]
  - OSTEONECROSIS [None]
